FAERS Safety Report 25401419 (Version 1)
Quarter: 2025Q2

REPORT INFORMATION
  Report Type: Spontaneous
  Country: PK (occurrence: PK)
  Receive Date: 20250605
  Receipt Date: 20250605
  Transmission Date: 20250717
  Serious: Yes (Other)
  Sender: PFIZER
  Company Number: PK-PFIZER INC-PV202500066082

PATIENT
  Age: 29 Year
  Sex: Female

DRUGS (8)
  1. RUXIENCE [Suspect]
     Active Substance: RITUXIMAB-PVVR
     Indication: Rheumatoid arthritis
     Route: 042
     Dates: start: 202505
  2. LEVOTHYROXINE [Concomitant]
     Active Substance: LEVOTHYROXINE
  3. LEVOTHYROXINE [Concomitant]
     Active Substance: LEVOTHYROXINE
  4. HYDROXYCHLOROQUINE [Concomitant]
     Active Substance: HYDROXYCHLOROQUINE
  5. SEROFT [Concomitant]
  6. RAPICORT [HYDROCORTISONE] [Concomitant]
  7. CYTOTREXATE [METHOTREXATE SODIUM] [Concomitant]
  8. FOLISIN [Concomitant]

REACTIONS (3)
  - Hypothyroidism [Unknown]
  - Red blood cell sedimentation rate increased [Unknown]
  - Off label use [Unknown]
